FAERS Safety Report 15757383 (Version 1)
Quarter: 2018Q4

REPORT INFORMATION
  Report Type: Spontaneous
  Country: US (occurrence: US)
  Receive Date: 20181224
  Receipt Date: 20181224
  Transmission Date: 20190205
  Serious: No
  Sender: FDA-Public Use
  Company Number: US-TEVA-2018-US-986108

PATIENT
  Sex: Female

DRUGS (1)
  1. LORAZEPAM (WATSON/ACTAVIS) [Suspect]
     Active Substance: LORAZEPAM
     Dates: start: 20181105

REACTIONS (4)
  - Paraesthesia oral [Not Recovered/Not Resolved]
  - Tongue pruritus [Unknown]
  - Product substitution issue [Unknown]
  - Frustration tolerance decreased [Unknown]

NARRATIVE: CASE EVENT DATE: 20181105
